FAERS Safety Report 17826650 (Version 1)
Quarter: 2020Q2

REPORT INFORMATION
  Report Type: Report from Study
  Country: US (occurrence: US)
  Receive Date: 20200526
  Receipt Date: 20200526
  Transmission Date: 20200714
  Serious: Yes (Hospitalization)
  Sender: FDA-Public Use
  Company Number: US-EXELIXIS-CABO-20028206

PATIENT
  Sex: Female

DRUGS (1)
  1. CABOMETYX [Suspect]
     Active Substance: CABOZANTINIB S-MALATE
     Indication: HEPATIC CANCER
     Dosage: 40 MG, QD AT 3 PM WITHOUT FOOD
     Dates: start: 20200228, end: 20200517

REACTIONS (8)
  - Blood pressure increased [Recovering/Resolving]
  - Decreased appetite [Unknown]
  - Skin burning sensation [Unknown]
  - Skin infection [Unknown]
  - Erythema [Unknown]
  - Dry skin [Unknown]
  - Fatigue [Not Recovered/Not Resolved]
  - Abdominal distension [Unknown]
